FAERS Safety Report 5889713-2 (Version None)
Quarter: 2008Q3

REPORT INFORMATION
  Report Type: 
  Country: None (occurrence: None)
  Receive Date: 20080919
  Receipt Date: 20080908
  Transmission Date: 20090109
  Serious: Yes (Other)
  Sender: FDA-Public Use
  Company Number: DK-WYE-H05966808

PATIENT

DRUGS (1)
  1. GEMTUZUMAB OZOGAMICIN [Suspect]
     Dosage: UNKNOWN

REACTIONS (3)
  - BLOOD TEST ABNORMAL [None]
  - DRUG TOXICITY [None]
  - INTRAVASCULAR HAEMOLYSIS [None]
